FAERS Safety Report 14238652 (Version 3)
Quarter: 2018Q1

REPORT INFORMATION
  Report Type: Report from Study
  Country: US (occurrence: US)
  Receive Date: 20171130
  Receipt Date: 20180129
  Transmission Date: 20180508
  Serious: Yes (Other)
  Sender: FDA-Public Use
  Company Number: PHEH2017US038256

PATIENT
  Age: 36 Year
  Sex: Female
  Weight: 67.3 kg

DRUGS (2)
  1. SPRINTEC [Concomitant]
     Active Substance: ETHINYL ESTRADIOL\NORGESTIMATE
     Indication: PRODUCT USED FOR UNKNOWN INDICATION
     Route: 065
  2. COSENTYX [Suspect]
     Active Substance: SECUKINUMAB
     Indication: PSORIASIS
     Dosage: 300 MG (EVERY FOUR WEEKS) QMO
     Route: 058
     Dates: start: 20170821

REACTIONS (6)
  - Injection site pain [Unknown]
  - Oral herpes [Unknown]
  - Psoriasis [Not Recovered/Not Resolved]
  - Inappropriate schedule of drug administration [Unknown]
  - Immunodeficiency [Unknown]
  - Fungal infection [Unknown]

NARRATIVE: CASE EVENT DATE: 20170821
